FAERS Safety Report 9548814 (Version 1)
Quarter: 2013Q3

REPORT INFORMATION
  Report Type: Spontaneous
  Country: US (occurrence: None)
  Receive Date: 20130923
  Receipt Date: 20130923
  Transmission Date: 20140515
  Serious: No
  Sender: FDA-Public Use
  Company Number: None

PATIENT
  Age: 48 Year
  Sex: Female
  Weight: 49.9 kg

DRUGS (1)
  1. OPANA [Suspect]
     Indication: BACK PAIN
     Dosage: TAKEN BY MOUTH

REACTIONS (2)
  - Abdominal pain upper [None]
  - Alopecia [None]
